FAERS Safety Report 9161445 (Version 2)
Quarter: 2013Q1

REPORT INFORMATION
  Report Type: Spontaneous
  Country: US (occurrence: US)
  Receive Date: 20130313
  Receipt Date: 20130327
  Transmission Date: 20140127
  Serious: No
  Sender: FDA-Public Use
  Company Number: US-009507513-1303USA002600

PATIENT
  Age: 34 Year
  Sex: 0

DRUGS (2)
  1. NEXPLANON [Suspect]
     Indication: CONTRACEPTION
     Dosage: 1 DF, UNK
     Route: 065
     Dates: start: 20130305, end: 20130305
  2. NEXPLANON [Suspect]
     Dosage: 1 DF, UNK
     Route: 065
     Dates: start: 20130305

REACTIONS (3)
  - Device difficult to use [Unknown]
  - Wrong technique in drug usage process [Unknown]
  - No adverse event [Unknown]
